FAERS Safety Report 8949840 (Version 1)
Quarter: 2012Q4

REPORT INFORMATION
  Report Type: 
  Country: FR (occurrence: FR)
  Receive Date: 20121206
  Receipt Date: 20121206
  Transmission Date: 20130627
  Serious: Yes (Other)
  Sender: FDA-Public Use
  Company Number: PHHY2012FR110977

PATIENT
  Sex: Male

DRUGS (1)
  1. VALSARTAN [Suspect]
     Dosage: 80 mg, QD
     Route: 048
     Dates: start: 201201, end: 201208

REACTIONS (3)
  - Angioedema [Recovered/Resolved]
  - Lip oedema [Recovered/Resolved]
  - Oedema [Recovered/Resolved]
